FAERS Safety Report 8044058-X (Version None)
Quarter: 2012Q1

REPORT INFORMATION
  Report Type: 
  Country: None (occurrence: None)
  Receive Date: 20120111
  Receipt Date: 20120111
  Transmission Date: 20120608
  Serious: Yes (Hospitalization)
  Sender: FDA-Public Use
  Company Number: None

PATIENT
  Sex: Male
  Weight: 93.8 kg

DRUGS (2)
  1. TAXOL [Suspect]
     Dosage: 384 MG
     Dates: end: 20111129
  2. CARBOPLATIN [Suspect]
     Dosage: 650 MG
     Dates: end: 20111129

REACTIONS (6)
  - NEOPLASM PROGRESSION [None]
  - PAIN [None]
  - NAUSEA [None]
  - HYPOPHAGIA [None]
  - CONFUSIONAL STATE [None]
  - PANCREATIC CARCINOMA METASTATIC [None]
